FAERS Safety Report 8224374-9 (Version None)
Quarter: 2012Q1

REPORT INFORMATION
  Report Type: 
  Country: None (occurrence: None)
  Receive Date: 20120321
  Receipt Date: 20120309
  Transmission Date: 20120608
  Serious: Yes (Hospitalization)
  Sender: FDA-Public Use
  Company Number: JP-PFIZER INC-2011133719

PATIENT
  Age: 80 Year
  Sex: Female
  Weight: 47 kg

DRUGS (6)
  1. IRINOTECAN HCL [Suspect]
     Indication: COLORECTAL CANCER
     Dosage: 170 MG/BODY (127.8 MG/M2
     Route: 041
     Dates: start: 20101101, end: 20101101
  2. IRINOTECAN HCL [Suspect]
     Dosage: 40 MG/BODY (30.1 MG/M2)
     Route: 041
     Dates: start: 20110124, end: 20110124
  3. CALCIUM LEVOFOLINATE [Concomitant]
     Indication: COLORECTAL CANCER
     Dosage: 290 MG/BODY (218 MG/M2)
     Route: 041
     Dates: start: 20101101, end: 20110124
  4. FLUOROURACIL [Concomitant]
     Indication: COLORECTAL CANCER
     Dosage: 460 MG/BODY (345.9 MG/M2)
     Route: 040
     Dates: start: 20101101, end: 20110124
  5. FLUOROURACIL [Concomitant]
     Dosage: 2750 MG/BODY/D1-2 (2067.7 MG/M2/D1-2)
     Route: 041
     Dates: start: 20101101, end: 20110124
  6. AVASTIN [Concomitant]
     Indication: COLORECTAL CANCER
     Dosage: 420 MG/BODY
     Route: 041
     Dates: start: 20101101, end: 20110124

REACTIONS (5)
  - LEUKOPENIA [None]
  - THROMBOCYTOPENIA [None]
  - NEUTROPENIA [None]
  - DIARRHOEA [None]
  - CHOLECYSTITIS ACUTE [None]
